FAERS Safety Report 15472872 (Version 2)
Quarter: 2019Q1

REPORT INFORMATION
  Report Type: Spontaneous
  Country: US (occurrence: US)
  Receive Date: 20181008
  Receipt Date: 20190314
  Transmission Date: 20190417
  Serious: No
  Sender: FDA-Public Use
  Company Number: US-PFIZER INC-2018397296

PATIENT
  Age: 67 Year
  Sex: Female

DRUGS (9)
  1. GABAPENTIN. [Suspect]
     Active Substance: GABAPENTIN
     Indication: NERVE INJURY
  2. ANASTROZOLE. [Concomitant]
     Active Substance: ANASTROZOLE
     Dosage: 1 MG, UNK
     Dates: start: 201808, end: 201901
  3. VITAMIN D [Concomitant]
     Active Substance: CHOLECALCIFEROL
     Dosage: UNK
  4. GABAPENTIN. [Suspect]
     Active Substance: GABAPENTIN
     Indication: BREAST CANCER METASTATIC
     Dosage: 3000 MG, DAILY (3000MG DAILY FOR OVER A YEAR)(300MG 3 CAP MORNING + 3 CAP AFTERNOON 400 MG 3 CAP HS)
     Dates: start: 20171213
  5. GABAPENTIN. [Suspect]
     Active Substance: GABAPENTIN
     Indication: BREAST TENDERNESS
  6. GABAPENTIN. [Suspect]
     Active Substance: GABAPENTIN
     Indication: METASTASES TO LIVER
     Dosage: 3000 MG, DAILY (3000MG DAILY FOR OVER A YEAR)(300MG 3 CAP MORNING + 3 CAP AFTERNOON 400 MG 3 CAP HS)
     Dates: start: 20171213
  7. VERZENIO [Concomitant]
     Active Substance: ABEMACICLIB
     Dosage: 150 MG, UNK
     Dates: start: 201808
  8. GABAPENTIN. [Suspect]
     Active Substance: GABAPENTIN
     Indication: BREAST PAIN
  9. GABAPENTIN. [Suspect]
     Active Substance: GABAPENTIN
     Indication: BACK PAIN

REACTIONS (8)
  - Malaise [Recovered/Resolved]
  - Withdrawal syndrome [Recovered/Resolved]
  - Nausea [Recovered/Resolved]
  - Headache [Recovered/Resolved]
  - Pruritus [Recovered/Resolved]
  - Tremor [Recovered/Resolved]
  - Drug ineffective for unapproved indication [Recovered/Resolved]
  - Feeling of body temperature change [Recovered/Resolved]
